FAERS Safety Report 6326237-2 (Version None)
Quarter: 2009Q3

REPORT INFORMATION
  Report Type: 
  Country: None (occurrence: None)
  Receive Date: 20090820
  Receipt Date: 20090806
  Transmission Date: 20100115
  Serious: Yes (Other)
  Sender: FDA-Public Use
  Company Number: TRP_06300_2009

PATIENT
  Sex: Female

DRUGS (2)
  1. RIBASPHERE [Suspect]
     Indication: HEPATITIS C
     Dosage: 1000 MG, DAILY ORAL
     Route: 048
     Dates: start: 20090424
  2. PEGASYS [Suspect]
     Indication: HEPATITIS C
     Dosage: 180 ?G 1X/WEEK SUBCUTANEOUS
     Route: 058
     Dates: start: 20090424

REACTIONS (18)
  - ASTHENIA [None]
  - ASTHENOPIA [None]
  - BLISTER [None]
  - CONDITION AGGRAVATED [None]
  - DRY EYE [None]
  - DYSPNOEA [None]
  - FATIGUE [None]
  - INSOMNIA [None]
  - IRRITABILITY [None]
  - LACRIMATION INCREASED [None]
  - NAUSEA [None]
  - PLATELET COUNT DECREASED [None]
  - POLLAKIURIA [None]
  - PRURITUS [None]
  - RASH [None]
  - SKIN NODULE [None]
  - SNEEZING [None]
  - WHITE BLOOD CELL COUNT DECREASED [None]
